FAERS Safety Report 5946807-0 (Version None)
Quarter: 2008Q4

REPORT INFORMATION
  Report Type: 
  Country: None (occurrence: None)
  Receive Date: 20081110
  Receipt Date: 20081030
  Transmission Date: 20090506
  Serious: Yes (Other)
  Sender: FDA-Public Use
  Company Number: GB-JNJFOC-20081100445

PATIENT

DRUGS (1)
  1. DOXORUBICIN HCL [Suspect]
     Indication: KAPOSI'S SARCOMA
     Route: 042

REACTIONS (1)
  - LYMPHOMA [None]
